FAERS Safety Report 4633417-0 (Version None)
Quarter: 2005Q2

REPORT INFORMATION
  Report Type: 
  Country: None (occurrence: None)
  Receive Date: 20050408
  Receipt Date: 20050329
  Transmission Date: 20051028
  Serious: Yes (Hospitalization)
  Sender: FDA-Public Use
  Company Number: EM2005-0168

PATIENT
  Age: 20 Year
  Sex: Male

DRUGS (7)
  1. PROLEUKIN [Suspect]
     Indication: MALIGNANT MELANOMA
     Dosage: 44 MIU, IV
     Route: 042
     Dates: start: 20050324, end: 20050326
  2. ZYRTEC [Concomitant]
  3. COMPAZINE [Concomitant]
  4. LASIX [Concomitant]
  5. POTASSIUM CHLORIDE [Concomitant]
  6. IMODIUM [Concomitant]
  7. OXYCODONE (OXYCODONE) [Concomitant]

REACTIONS (6)
  - CHILLS [None]
  - HYPOALBUMINAEMIA [None]
  - HYPOCALCAEMIA [None]
  - HYPOMAGNESAEMIA [None]
  - HYPOPHOSPHATAEMIA [None]
  - PYREXIA [None]
